FAERS Safety Report 5223993-1 (Version None)
Quarter: 2007Q1

REPORT INFORMATION
  Report Type: 
  Country: None (occurrence: None)
  Receive Date: 20070130
  Receipt Date: 20070126
  Transmission Date: 20070707
  Serious: Yes (Death, Hospitalization)
  Sender: FDA-Public Use
  Company Number: ES-GLAXOSMITHKLINE-B0456260A

PATIENT
  Age: 30 Year
  Sex: Male

DRUGS (1)
  1. AUGMENTIN '125' [Suspect]
     Route: 042
     Dates: start: 20060731, end: 20060809

REACTIONS (2)
  - DEATH [None]
  - HEPATITIS CHOLESTATIC [None]
